FAERS Safety Report 6259034-7 (Version None)
Quarter: 2009Q3

REPORT INFORMATION
  Report Type: 
  Country: None (occurrence: None)
  Receive Date: 20090707
  Receipt Date: 20090629
  Transmission Date: 20100115
  Serious: Yes (Other)
  Sender: FDA-Public Use
  Company Number: PHHY2009FR26307

PATIENT
  Age: 54 Year
  Sex: Male

DRUGS (11)
  1. EVEROLIMUS [Suspect]
     Indication: RENAL TRANSPLANT
     Dosage: 1.5 MG, BID
  2. EVEROLIMUS [Interacting]
     Dosage: 0.5 MG, BID
  3. EVEROLIMUS [Interacting]
     Dosage: 0.25 MG, BID
  4. EVEROLIMUS [Interacting]
     Dosage: 1 MG, BID
  5. VORICONAZOLE [Interacting]
     Indication: ANTIFUNGAL PROPHYLAXIS
     Dosage: 400 MG, BID
  6. VORICONAZOLE [Interacting]
     Dosage: 200 MG, BID
  7. POSACONAZOLE [Interacting]
     Indication: ANTIFUNGAL PROPHYLAXIS
     Dosage: 400 MG, BID
  8. ISONIAZID [Concomitant]
     Indication: INFECTION PROPHYLAXIS
  9. ACYCLOVIR [Concomitant]
     Indication: INFECTION PROPHYLAXIS
  10. AMPHOTERICIN B [Concomitant]
     Indication: INFECTION PROPHYLAXIS
  11. CORTICOSTEROIDS [Concomitant]

REACTIONS (5)
  - DRUG INTERACTION [None]
  - DRUG LEVEL ABOVE THERAPEUTIC [None]
  - DRUG LEVEL INCREASED [None]
  - GAMMA-GLUTAMYLTRANSFERASE INCREASED [None]
  - HEPATOTOXICITY [None]
